FAERS Safety Report 10255343 (Version 1)
Quarter: 2014Q2

REPORT INFORMATION
  Report Type: Spontaneous
  Country: IT (occurrence: None)
  Receive Date: 20140620
  Receipt Date: 20140620
  Transmission Date: 20141212
  Serious: Yes (Disabling)
  Sender: FDA-Public Use
  Company Number: 2014-001755

PATIENT
  Age: 58 Year
  Sex: Female

DRUGS (1)
  1. OPTINATE [Suspect]
     Indication: OSTEOPOROSIS
     Route: 048
     Dates: start: 20111102, end: 20140210

REACTIONS (2)
  - Osteolysis [None]
  - Jaw disorder [None]
